FAERS Safety Report 5367124-6 (Version None)
Quarter: 2007Q2

REPORT INFORMATION
  Report Type: 
  Country: None (occurrence: None)
  Receive Date: 20070622
  Receipt Date: 20060721
  Transmission Date: 20071010
  Serious: No
  Sender: FDA-Public Use
  Company Number: US-BRISTOL-MYERS SQUIBB COMPANY-13449426

PATIENT
  Age: 79 Year
  Sex: Male
  Weight: 79 kg

DRUGS (6)
  1. SINEMET [Suspect]
     Indication: PARKINSON'S DISEASE
     Route: 048
     Dates: start: 20060601
  2. LOVASTATIN [Concomitant]
  3. ASPIRIN [Concomitant]
  4. FLOMAX [Concomitant]
  5. PROSCAR [Concomitant]
  6. MIRAPEX [Concomitant]

REACTIONS (1)
  - TENDONITIS [None]
